FAERS Safety Report 5786679-0 (Version None)
Quarter: 2008Q2

REPORT INFORMATION
  Report Type: 
  Country: None (occurrence: None)
  Receive Date: 20080624
  Receipt Date: 20080610
  Transmission Date: 20081010
  Serious: Yes (Hospitalization, Other)
  Sender: FDA-Public Use
  Company Number: US-ELI_LILLY_AND_COMPANY-US200806002117

PATIENT
  Sex: Female

DRUGS (3)
  1. FORTEO [Suspect]
     Indication: OSTEOPOROSIS
     Dates: start: 20071101
  2. VITAMINS NOS [Concomitant]
  3. ALLERGY MEDICATION [Concomitant]

REACTIONS (3)
  - FAILURE OF IMPLANT [None]
  - FALL [None]
  - FEMUR FRACTURE [None]
